FAERS Safety Report 9804250 (Version 3)
Quarter: 2014Q1

REPORT INFORMATION
  Report Type: Report from Study
  Country: US (occurrence: US)
  Receive Date: 20140108
  Receipt Date: 20140117
  Transmission Date: 20141002
  Serious: Yes (Hospitalization)
  Sender: FDA-Public Use
  Company Number: US-ACTELION-A-NJ2013-92175

PATIENT
  Age: 47 Year
  Sex: Female

DRUGS (3)
  1. TRACLEER [Suspect]
     Indication: PULMONARY ARTERIAL HYPERTENSION
     Dosage: UNK
     Route: 048
     Dates: start: 20080602
  2. REMODULIN [Concomitant]
  3. COUMADIN [Concomitant]

REACTIONS (5)
  - Blood potassium increased [Recovering/Resolving]
  - Gastroenteritis viral [Recovering/Resolving]
  - Dehydration [Recovering/Resolving]
  - Nausea [Recovering/Resolving]
  - Vomiting [Recovering/Resolving]
